FAERS Safety Report 23717813 (Version 1)
Quarter: 2024Q2

REPORT INFORMATION
  Report Type: Spontaneous
  Country: PL (occurrence: PL)
  Receive Date: 20240408
  Receipt Date: 20240408
  Transmission Date: 20240715
  Serious: Yes (Death, Life-Threatening, Hospitalization, Other)
  Sender: FDA-Public Use
  Company Number: PL-EMA-DD-20240308-7482701-110404

PATIENT
  Age: 12 Year
  Sex: Female

DRUGS (25)
  1. ETOPOSIDE [Suspect]
     Active Substance: ETOPOSIDE
     Indication: Acute lymphocytic leukaemia
     Dosage: UNK
  2. METHOTREXATE [Suspect]
     Active Substance: METHOTREXATE
     Indication: Acute lymphocytic leukaemia
     Dosage: 5 G/M2
  3. CYTARABINE [Suspect]
     Active Substance: CYTARABINE
     Indication: Acute lymphocytic leukaemia
     Dosage: UNK
  4. DOXORUBICIN [Suspect]
     Active Substance: DOXORUBICIN
     Indication: Acute lymphocytic leukaemia
     Dosage: UNK
  5. FILGRASTIM [Suspect]
     Active Substance: FILGRASTIM
     Indication: Acute lymphocytic leukaemia
     Dosage: UNK
  6. IMATINIB MESYLATE [Suspect]
     Active Substance: IMATINIB MESYLATE
     Indication: Acute lymphocytic leukaemia
     Dosage: 340 MG/M2 FROM DAY 15 OF THE THERAPY.
  7. DEXRAZOXANE HYDROCHLORIDE [Suspect]
     Active Substance: DEXRAZOXANE HYDROCHLORIDE
     Indication: Acute lymphocytic leukaemia
     Dosage: UNK
  8. IFOSFAMIDE [Suspect]
     Active Substance: IFOSFAMIDE
     Indication: Acute lymphocytic leukaemia
     Dosage: UNK
  9. CALASPARGASE PEGOL [Suspect]
     Active Substance: CALASPARGASE PEGOL
     Indication: Acute lymphocytic leukaemia
     Dosage: UNK, UNK, QID
  10. LEUCOVORIN CALCIUM [Suspect]
     Active Substance: LEUCOVORIN CALCIUM
     Indication: Acute lymphocytic leukaemia
     Dosage: UNK
  11. MERCAPTOPURINE [Suspect]
     Active Substance: MERCAPTOPURINE
     Indication: Acute lymphocytic leukaemia
     Dosage: UNK
  12. DEXAMETHASONE [Suspect]
     Active Substance: DEXAMETHASONE
     Indication: Acute lymphocytic leukaemia
     Dosage: UNK
     Dates: start: 202112
  13. METHYLPREDNISOLONE [Suspect]
     Active Substance: METHYLPREDNISOLONE
     Indication: Acute lymphocytic leukaemia
  14. VINCRISTINE SULFATE [Suspect]
     Active Substance: VINCRISTINE SULFATE
     Indication: Acute lymphocytic leukaemia
     Dosage: UNK
  15. DAUNORUBICIN HYDROCHLORIDE [Suspect]
     Active Substance: DAUNORUBICIN HYDROCHLORIDE
     Indication: Acute lymphocytic leukaemia
     Dosage: UNK
  16. PEGASPARGASE [Suspect]
     Active Substance: PEGASPARGASE
     Indication: Acute lymphocytic leukaemia
     Dosage: UNK
  17. PREDNISOLONE [Suspect]
     Active Substance: PREDNISOLONE
     Indication: Acute lymphocytic leukaemia
  18. CYCLOPHOSPHAMIDE [Suspect]
     Active Substance: CYCLOPHOSPHAMIDE
     Indication: Acute lymphocytic leukaemia
  19. HUMAN IMMUNOGLOBULIN G [Suspect]
     Active Substance: HUMAN IMMUNOGLOBULIN G
     Indication: Respiratory syncytial virus infection
     Dosage: UNK
     Dates: start: 202112
  20. HYDROCORTISONE [Suspect]
     Active Substance: HYDROCORTISONE
     Indication: Acute lymphocytic leukaemia
     Dosage: UNK
  21. THIOGUANINE ANHYDROUS [Suspect]
     Active Substance: THIOGUANINE ANHYDROUS
     Indication: Acute lymphocytic leukaemia
     Dosage: UNK
  22. VANCOMYCIN [Concomitant]
     Active Substance: VANCOMYCIN
     Dosage: UNK
  23. MEROPENEM [Concomitant]
     Active Substance: MEROPENEM
     Dosage: UNK
  24. BUDESONIDE [Concomitant]
     Active Substance: BUDESONIDE
     Indication: Respiratory syncytial virus infection
     Dosage: UNK, UNK, QID
     Dates: start: 202112
  25. CLARITHROMYCIN [Concomitant]
     Active Substance: CLARITHROMYCIN
     Dosage: UNK

REACTIONS (13)
  - Coagulopathy [Fatal]
  - Pancytopenia [Fatal]
  - Product use issue [Unknown]
  - Clostridium difficile infection [Fatal]
  - Respiratory syncytial virus infection [Fatal]
  - Circulatory collapse [Fatal]
  - Polyneuropathy [Fatal]
  - Hypoalbuminaemia [Fatal]
  - Electrolyte imbalance [Fatal]
  - Renal failure [Fatal]
  - Gastrointestinal haemorrhage [Fatal]
  - Hepatotoxicity [Fatal]
  - Hypertriglyceridaemia [Fatal]
